FAERS Safety Report 5015199-6 (Version None)
Quarter: 2006Q2

REPORT INFORMATION
  Report Type: 
  Country: None (occurrence: None)
  Receive Date: 20060425
  Receipt Date: 20060329
  Transmission Date: 20061013
  Serious: No
  Sender: FDA-Public Use
  Company Number: 222931

PATIENT
  Age: 48 Year
  Sex: Male

DRUGS (2)
  1. XOLAIR [Suspect]
     Indication: ASTHMA
     Dosage: 150 MG, 1/MONTH
     Dates: start: 20040101
  2. VITAMINS (VITAMINS NOS) [Concomitant]

REACTIONS (1)
  - HYPOGLYCAEMIA [None]
